FAERS Safety Report 6015144-0 (Version None)
Quarter: 2008Q4

REPORT INFORMATION
  Report Type: 
  Country: None (occurrence: None)
  Receive Date: 20081219
  Receipt Date: 20081219
  Transmission Date: 20090506
  Serious: No
  Sender: FDA-Public Use
  Company Number: None

PATIENT
  Sex: Female
  Weight: 51.2565 kg

DRUGS (1)
  1. VALPROIC ACID [Suspect]
     Indication: EPILEPSY
     Dosage: 500MG - 1 PO TID
     Route: 048
     Dates: start: 20051108

REACTIONS (2)
  - CONVULSION [None]
  - THERAPEUTIC RESPONSE UNEXPECTED WITH DRUG SUBSTITUTION [None]
